FAERS Safety Report 8920565 (Version 1)
Quarter: 2012Q4

REPORT INFORMATION
  Report Type: 
  Country: MX (occurrence: MX)
  Receive Date: 20121122
  Receipt Date: 20121122
  Transmission Date: 20130627
  Serious: Yes (Death, Other)
  Sender: FDA-Public Use
  Company Number: MX-AMGEN-MEXSP2012074949

PATIENT
  Sex: Female

DRUGS (1)
  1. NPLATE [Suspect]
     Indication: IDIOPATHIC THROMBOCYTOPENIC PURPURA
     Dosage: 3 mug/kg, UNK

REACTIONS (4)
  - Death [Fatal]
  - Splenectomy [Unknown]
  - Drug ineffective [Unknown]
  - Platelet count abnormal [Unknown]
